FAERS Safety Report 7367742-X (Version None)
Quarter: 2011Q1

REPORT INFORMATION
  Report Type: 
  Country: None (occurrence: None)
  Receive Date: 20110322
  Receipt Date: 20110223
  Transmission Date: 20110831
  Serious: No
  Sender: FDA-Public Use
  Company Number: US-B.I. PHARMACEUTICALS,INC./RIDGEFIELD-2011-BP-06731BP

PATIENT
  Sex: Female

DRUGS (8)
  1. JANUMET [Concomitant]
     Indication: DIABETES MELLITUS
     Route: 048
  2. LEVOTHYROXINE SODIUM [Concomitant]
     Indication: HYPOTHYROIDISM
     Dosage: 50 MCG
     Route: 048
  3. ZOCOR [Concomitant]
     Indication: BLOOD CHOLESTEROL INCREASED
     Dosage: 5 MG
     Route: 048
  4. ASPIRIN [Concomitant]
     Indication: PROPHYLAXIS
     Dosage: 81 MG
     Route: 048
  5. SOTALOL HCL [Concomitant]
     Indication: ATRIAL FIBRILLATION
     Dosage: 160 MG
     Route: 048
  6. MAGNESIUM [Concomitant]
     Route: 048
  7. FERROUS SULFATE TAB [Concomitant]
     Indication: ANAEMIA
     Dosage: 975 MG
     Route: 048
  8. PRADAXA [Suspect]
     Indication: ATRIAL FIBRILLATION
     Dosage: 300 MG
     Route: 048
     Dates: start: 20110119, end: 20110201

REACTIONS (4)
  - HAEMATURIA [None]
  - HAEMORRHAGE URINARY TRACT [None]
  - URINARY TRACT INFECTION [None]
  - HEADACHE [None]
